FAERS Safety Report 4292115-6 (Version None)
Quarter: 2004Q1

REPORT INFORMATION
  Report Type: 
  Country: None (occurrence: None)
  Receive Date: 20040211
  Receipt Date: 20031209
  Transmission Date: 20041129
  Serious: No
  Sender: FDA-Public Use
  Company Number: US-GLAXOSMITHKLINE-A0442535A

PATIENT
  Age: 55 Year
  Sex: Male

DRUGS (8)
  1. LAMICTAL [Suspect]
     Indication: BIPOLAR DISORDER
     Dosage: 50MG TWICE PER DAY
     Route: 048
  2. NEXIUM [Concomitant]
  3. TRAZODONE HCL [Concomitant]
  4. LISINOPRIL [Concomitant]
  5. TRIAMCINOLONE CREAM [Concomitant]
  6. FELODIPINE [Concomitant]
  7. CITALOPRAM [Concomitant]
  8. BACLOFEN [Concomitant]

REACTIONS (1)
  - RASH [None]
